FAERS Safety Report 10055753 (Version 1)
Quarter: 2014Q2

REPORT INFORMATION
  Report Type: Spontaneous
  Country: US (occurrence: None)
  Receive Date: 20140402
  Receipt Date: 20140402
  Transmission Date: 20141212
  Serious: Yes (Other)
  Sender: FDA-Public Use
  Company Number: None

PATIENT
  Age: 56 Year
  Sex: Female

DRUGS (3)
  1. MIRAPEX ER [Suspect]
     Indication: SPINAL CORD DISORDER
     Route: 048
     Dates: start: 20140331, end: 20140401
  2. MIRAPEX ER [Suspect]
     Indication: ACCIDENT
     Route: 048
     Dates: start: 20140331, end: 20140401
  3. NEUPRO PATCHES [Concomitant]

REACTIONS (5)
  - Eyelid oedema [None]
  - Nausea [None]
  - Dizziness [None]
  - Lethargy [None]
  - Disturbance in attention [None]
